FAERS Safety Report 4656827-4 (Version None)
Quarter: 2005Q2

REPORT INFORMATION
  Report Type: 
  Country: None (occurrence: None)
  Receive Date: 20050505
  Receipt Date: 20050425
  Transmission Date: 20051028
  Serious: No
  Sender: FDA-Public Use
  Company Number: 2005UW06450

PATIENT
  Sex: Female

DRUGS (4)
  1. LOSEC [Suspect]
     Indication: ABDOMINAL PAIN UPPER
     Dosage: 40 MG QD PO
     Route: 048
     Dates: start: 20050423
  2. LOSEC [Suspect]
     Indication: DYSPEPSIA
     Dosage: 40 MG QD PO
     Route: 048
     Dates: start: 20050423
  3. FLUCONAZOLE [Concomitant]
  4. NYSTATIN [Concomitant]

REACTIONS (1)
  - INTESTINAL HAEMORRHAGE [None]
